FAERS Safety Report 8980093 (Version 1)
Quarter: 2012Q4

REPORT INFORMATION
  Report Type: 
  Country: DK (occurrence: DK)
  Receive Date: 20121221
  Receipt Date: 20121221
  Transmission Date: 20130627
  Serious: Yes (Other)
  Sender: FDA-Public Use
  Company Number: PHHY2012DK116555

PATIENT

DRUGS (2)
  1. PINDOLOL [Suspect]
     Dosage: 20 mg, UNK
  2. VENLAFAXINE [Concomitant]
     Indication: MAJOR DEPRESSION

REACTIONS (1)
  - Asthma [Unknown]
